FAERS Safety Report 14920198 (Version 4)
Quarter: 2018Q2

REPORT INFORMATION
  Report Type: Spontaneous
  Country: US (occurrence: US)
  Receive Date: 20180521
  Receipt Date: 20180620
  Transmission Date: 20180711
  Serious: Yes (Other)
  Sender: FDA-Public Use
  Company Number: US-ASTRAZENECA-2018SE65899

PATIENT
  Age: 26940 Day
  Sex: Female
  Weight: 52.9 kg

DRUGS (6)
  1. PULMICORT FLEXHALER [Suspect]
     Active Substance: BUDESONIDE
     Indication: BRONCHITIS
     Route: 055
     Dates: end: 201802
  2. PREDNISONE. [Concomitant]
     Active Substance: PREDNISONE
     Indication: ASTHMA
     Dosage: 40.0MG UNKNOWN
     Route: 048
     Dates: start: 20180516
  3. PULMICORT FLEXHALER [Suspect]
     Active Substance: BUDESONIDE
     Indication: ASTHMA
     Dosage: 90 UG, ONE INHALATION TWICE A DAY
     Route: 055
     Dates: start: 20180426
  4. VENTOLIN [Concomitant]
     Active Substance: ALBUTEROL SULFATE
  5. PULMICORT FLEXHALER [Suspect]
     Active Substance: BUDESONIDE
     Indication: ASTHMA
     Route: 055
     Dates: end: 201802
  6. PULMICORT FLEXHALER [Suspect]
     Active Substance: BUDESONIDE
     Indication: BRONCHITIS
     Dosage: 90 UG, ONE INHALATION TWICE A DAY
     Route: 055
     Dates: start: 20180426

REACTIONS (6)
  - Device malfunction [Unknown]
  - Off label use [Not Recovered/Not Resolved]
  - Asthma [Unknown]
  - Product use in unapproved indication [Not Recovered/Not Resolved]
  - Drug dose omission [Unknown]
  - Intentional device misuse [Unknown]

NARRATIVE: CASE EVENT DATE: 20180426
